FAERS Safety Report 11790064 (Version 1)
Quarter: 2015Q4

REPORT INFORMATION
  Report Type: Spontaneous
  Country: US (occurrence: US)
  Receive Date: 20151201
  Receipt Date: 20151201
  Transmission Date: 20160305
  Serious: No
  Sender: FDA-Public Use
  Company Number: GXBR2015US002239

PATIENT
  Age: 53 Year
  Sex: Male
  Weight: 113 kg

DRUGS (1)
  1. CEFAZOLIN FOR INJECTION, USP [Suspect]
     Active Substance: CEFAZOLIN SODIUM
     Indication: LOCALISED INFECTION
     Dosage: 50 ML, Q8H
     Route: 042
     Dates: end: 20150913

REACTIONS (10)
  - Pain in extremity [Not Recovered/Not Resolved]
  - Hypertension [Recovered/Resolved]
  - Hypoaesthesia [Recovering/Resolving]
  - Feeling abnormal [Recovered/Resolved]
  - Chest pain [Recovering/Resolving]
  - Tendon pain [Not Recovered/Not Resolved]
  - Tremor [Recovering/Resolving]
  - Back pain [Not Recovered/Not Resolved]
  - Arthralgia [Not Recovered/Not Resolved]
  - Myalgia [Not Recovered/Not Resolved]

NARRATIVE: CASE EVENT DATE: 20150913
